FAERS Safety Report 4808489-0 (Version None)
Quarter: 2005Q4

REPORT INFORMATION
  Report Type: 
  Country: None (occurrence: None)
  Receive Date: 20051021
  Receipt Date: 20040407
  Transmission Date: 20060501
  Serious: Yes (Hospitalization)
  Sender: FDA-Public Use
  Company Number: CA_040506906

PATIENT
  Age: 22 Year
  Sex: Male
  Weight: 95 kg

DRUGS (2)
  1. ZYPREXA [Suspect]
     Dosage: 20 MG AT BETIME
  2. CELEXA [Concomitant]

REACTIONS (1)
  - PULMONARY EMBOLISM [None]
